FAERS Safety Report 8049569-9 (Version None)
Quarter: 2012Q1

REPORT INFORMATION
  Report Type: 
  Country: None (occurrence: None)
  Receive Date: 20120117
  Receipt Date: 20120111
  Transmission Date: 20120608
  Serious: Yes (Other)
  Sender: FDA-Public Use
  Company Number: US-ROCHE-793927

PATIENT
  Sex: Female
  Weight: 49.94 kg

DRUGS (2)
  1. CLARITIN [Suspect]
     Indication: ACNE
     Dates: start: 20020211
  2. ACCUTANE [Suspect]
     Indication: ACNE
     Route: 048
     Dates: start: 19990225, end: 20031230

REACTIONS (2)
  - INFLAMMATORY BOWEL DISEASE [None]
  - IRRITABLE BOWEL SYNDROME [None]
